FAERS Safety Report 4313228-6 (Version None)
Quarter: 2004Q1

REPORT INFORMATION
  Report Type: 
  Country: None (occurrence: None)
  Receive Date: 20040304
  Receipt Date: 20040220
  Transmission Date: 20041129
  Serious: Yes (Hospitalization)
  Sender: FDA-Public Use
  Company Number: TEST00204000476

PATIENT
  Age: 95 Year
  Sex: Male

DRUGS (2)
  1. ANDROGEL [Suspect]
     Indication: HYPOGONADISM
     Dosage: 5 G QD TD
     Route: 062
     Dates: start: 20020808
  2. ASPIRIN [Concomitant]

REACTIONS (2)
  - FALL [None]
  - HIP FRACTURE [None]
